FAERS Safety Report 22727738 (Version 6)
Quarter: 2024Q3

REPORT INFORMATION
  Report Type: Report from Study
  Country: JP (occurrence: None)
  Receive Date: 20230720
  Receipt Date: 20240912
  Transmission Date: 20241017
  Serious: Yes (Hospitalization, Other)
  Sender: ASTRAZENECA
  Company Number: 2023A060144

PATIENT
  Age: 16 Year
  Sex: Male
  Weight: 70 kg

DRUGS (4)
  1. KOSELUGO [Suspect]
     Active Substance: SELUMETINIB
     Indication: Neurofibroma
     Dosage: NUMBER OF SEPARATE DOSAGES UNKNOWN, MOSTLY ON AN EMPTY STOMACH
     Route: 048
     Dates: start: 20230216, end: 20230228
  2. KOSELUGO [Suspect]
     Active Substance: SELUMETINIB
     Indication: Neurofibroma
     Dosage: NUMBER OF SEPARATE DOSAGES UNKNOWN, MOSTLY ON AN EMPTY STOMACH
     Route: 048
     Dates: start: 20230316, end: 20230518
  3. KOSELUGO [Suspect]
     Active Substance: SELUMETINIB
     Indication: Neurofibroma
     Route: 048
     Dates: start: 20230814
  4. LEVOTHYROXINE [Concomitant]
     Active Substance: LEVOTHYROXINE\LEVOTHYROXINE SODIUM
     Dosage: NUMBER OF SEPARATE DOSAGES UNKNOWN

REACTIONS (10)
  - Retinal detachment [Recovering/Resolving]
  - Dermatitis acneiform [Unknown]
  - Pyrexia [Recovered/Resolved]
  - Diarrhoea [Recovered/Resolved]
  - Decreased appetite [Unknown]
  - Abdominal discomfort [Recovering/Resolving]
  - Cardiomyopathy [Recovered/Resolved]
  - Anaemia [Recovered/Resolved]
  - Blood creatine phosphokinase increased [Not Recovered/Not Resolved]
  - Nausea [Recovered/Resolved]

NARRATIVE: CASE EVENT DATE: 20230220
